FAERS Safety Report 4364297-9 (Version None)
Quarter: 2004Q2

REPORT INFORMATION
  Report Type: 
  Country: None (occurrence: None)
  Receive Date: 20040525
  Receipt Date: 20040414
  Transmission Date: 20050107
  Serious: Yes (Other)
  Sender: FDA-Public Use
  Company Number: PHBS2004JP05081

PATIENT
  Age: 57 Year
  Sex: Female
  Weight: 66 kg

DRUGS (12)
  1. DIOVAN [Suspect]
     Dosage: 80 MG/DAY
     Route: 048
     Dates: start: 20040312, end: 20040406
  2. NORVASC [Concomitant]
     Indication: HYPERTENSION
     Dosage: 5 MG/DAY
     Route: 048
     Dates: start: 20031106
  3. MEVALOTIN [Concomitant]
     Indication: HYPERLIPIDAEMIA
     Dosage: 10 TO 20 MG/DAY
     Route: 048
     Dates: start: 20031208
  4. SINGULAIR [Concomitant]
     Indication: ASTHMA
     Dosage: 10 MG/DAY
     Route: 048
     Dates: start: 20021007
  5. THEOPHYLLINE [Concomitant]
     Indication: ASTHMA
     Dosage: 400 MG/DAY
     Route: 048
     Dates: start: 20021007
  6. FRANDOL [Concomitant]
     Indication: ANGINA PECTORIS
     Dosage: 40 MG/DAY
     Route: 048
     Dates: start: 20021007
  7. KAMAG G [Concomitant]
     Indication: CONSTIPATION
     Dosage: 1.5 G/DAY
     Route: 048
     Dates: start: 20021007
  8. HOKUNALIN [Concomitant]
     Indication: ASTHMA
     Dosage: 2 MG/DAY
     Route: 062
     Dates: start: 20040308
  9. FLUTIDE DISKUS [Concomitant]
     Indication: ASTHMA
     Dosage: 800 UG/DAY
     Route: 048
     Dates: start: 20021007
  10. NU-LOTAN [Concomitant]
     Indication: HYPERTENSION
     Dosage: 50 MG/DAY
     Route: 048
     Dates: start: 20021007, end: 20040312
  11. NU-LOTAN [Concomitant]
     Dosage: 50 MG/DAY
     Dates: start: 20040406
  12. PREDNISOLONE [Concomitant]
     Indication: ASTHMA
     Dosage: 20 TO 10 MG/DAY
     Route: 048
     Dates: start: 20040310, end: 20040318

REACTIONS (4)
  - HAEMOGLOBIN DECREASED [None]
  - PLATELET COUNT DECREASED [None]
  - THROMBOCYTOPENIA [None]
  - WHITE BLOOD CELL COUNT DECREASED [None]
